FAERS Safety Report 8489985-4 (Version None)
Quarter: 2012Q3

REPORT INFORMATION
  Report Type: 
  Country: None (occurrence: None)
  Receive Date: 20120705
  Receipt Date: 20120627
  Transmission Date: 20120928
  Serious: Yes (Other)
  Sender: FDA-Public Use
  Company Number: FR-JNJFOC-20120611113

PATIENT
  Age: 19 Year
  Sex: Male

DRUGS (4)
  1. PREZISTA [Suspect]
     Indication: HIV INFECTION
     Route: 048
     Dates: start: 20101109
  2. RITONAVIR [Suspect]
     Indication: HIV INFECTION
     Route: 065
     Dates: start: 20101109
  3. BILTRICIDE [Suspect]
     Indication: INFECTION PARASITIC
     Dosage: TREATMENT STOPPED AFTER 3 COURSES
     Route: 065
     Dates: start: 20120401
  4. TRUVADA [Concomitant]
     Indication: HIV INFECTION
     Route: 065
     Dates: start: 20101109

REACTIONS (2)
  - CYTOLYTIC HEPATITIS [None]
  - CHOLESTASIS [None]
